FAERS Safety Report 24262962 (Version 1)
Quarter: 2024Q3

REPORT INFORMATION
  Report Type: Report from Study
  Country: CA (occurrence: None)
  Receive Date: 20240829
  Receipt Date: 20240829
  Transmission Date: 20241017
  Serious: Yes (Hospitalization)
  Sender: ASTRAZENECA
  Company Number: 2024A192222

PATIENT
  Sex: Female

DRUGS (16)
  1. FASENRA [Suspect]
     Active Substance: BENRALIZUMAB
     Indication: Asthma
     Dosage: 30.0MG UNKNOWN
     Route: 058
     Dates: start: 20240108
  2. VENTOLIN [Concomitant]
     Active Substance: ALBUTEROL SULFATE
     Dosage: 100 MCG
  3. NUCALA [Concomitant]
     Active Substance: MEPOLIZUMAB
  4. AZITHROMYCIN [Concomitant]
     Active Substance: AZITHROMYCIN
  5. TOBRAMYCIN [Concomitant]
     Active Substance: TOBRAMYCIN\TOBRAMYCIN SULFATE
  6. GLYCOPYRROLATE\INDACATEROL\MOMETASONE FUROATE [Concomitant]
     Active Substance: GLYCOPYRROLATE\INDACATEROL\MOMETASONE FUROATE
  7. ROSUVASTATIN [Concomitant]
     Active Substance: ROSUVASTATIN\ROSUVASTATIN CALCIUM
  8. MIRTAZAPINE [Concomitant]
     Active Substance: MIRTAZAPINE
  9. ALBUTEROL [Concomitant]
     Active Substance: ALBUTEROL
  10. MORPHINE [Concomitant]
     Active Substance: MORPHINE
  11. LORAZEPAM [Concomitant]
     Active Substance: LORAZEPAM
  12. PREGABALIN [Concomitant]
     Active Substance: PREGABALIN
  13. METFORMIN [Concomitant]
     Active Substance: METFORMIN HYDROCHLORIDE
  14. TEMAZEPAM [Concomitant]
     Active Substance: TEMAZEPAM
  15. ZOPICLONE [Concomitant]
     Active Substance: ZOPICLONE
  16. RIMIPRAMINE [Concomitant]

REACTIONS (3)
  - Infection [Recovered/Resolved]
  - Pyrexia [Recovered/Resolved]
  - Confusional state [Recovered/Resolved]
